FAERS Safety Report 10038567 (Version 1)
Quarter: 2014Q1

REPORT INFORMATION
  Report Type: Spontaneous
  Country: US (occurrence: None)
  Receive Date: 20140306
  Receipt Date: 20140306
  Transmission Date: 20141002
  Serious: Yes (Hospitalization)
  Sender: FDA-Public Use
  Company Number: 163-21880-13111770

PATIENT
  Age: 81 Year
  Sex: Male

DRUGS (2)
  1. REVLIMID (LENALIDOMIDE) (CAPSULES) [Suspect]
     Indication: PLASMA CELL MYELOMA
     Dosage: 28 IN 28 D
     Route: 048
     Dates: start: 20120705, end: 20130118
  2. VELCADE (BORTEZOMIB) (INJECTION) [Suspect]
     Indication: PLASMA CELL MYELOMA
     Dosage: 1 IN 1 WK
     Route: 058
     Dates: start: 20130912, end: 20131025

REACTIONS (1)
  - Diarrhoea [None]
